FAERS Safety Report 20936776 (Version 1)
Quarter: 2022Q2

REPORT INFORMATION
  Report Type: Spontaneous
  Country: DE (occurrence: DE)
  Receive Date: 20220609
  Receipt Date: 20220609
  Transmission Date: 20220721
  Serious: No
  Sender: FDA-Public Use
  Company Number: DE-LUPIN PHARMACEUTICALS INC.-2022-08386

PATIENT
  Age: 14 Year
  Sex: Male
  Weight: 111 kg

DRUGS (8)
  1. TRIAMCINOLONE ACETONIDE [Suspect]
     Active Substance: TRIAMCINOLONE ACETONIDE
     Indication: Acquired epidermolysis bullosa
     Dosage: 0.1 PERCENT
     Route: 061
  2. PREDNISOLONE [Suspect]
     Active Substance: PREDNISOLONE
     Indication: Acquired epidermolysis bullosa
     Dosage: 0.5 MILLIGRAM/KILOGRAM (50 MG/DAY)
     Route: 048
  3. AMPICILLIN SODIUM\SULBACTAM SODIUM [Concomitant]
     Active Substance: AMPICILLIN SODIUM\SULBACTAM SODIUM
     Indication: Staphylococcal infection
     Dosage: UNK
     Route: 065
  4. POLIHEXANIDE [Concomitant]
     Active Substance: POLIHEXANIDE
     Indication: Staphylococcal infection
     Dosage: UNK
     Route: 065
  5. POLIHEXANIDE [Concomitant]
     Active Substance: POLIHEXANIDE
     Indication: Acquired epidermolysis bullosa
     Dosage: 0.04 PERCENT, POLYHEXANIDE IN UNGUENTUM CORDES
     Route: 061
  6. DAPSONE [Concomitant]
     Active Substance: DAPSONE
     Indication: Acquired epidermolysis bullosa
     Dosage: 100 MILLIGRAM, QD
     Route: 065
  7. FUSIDIC ACID [Concomitant]
     Active Substance: FUSIDIC ACID
     Indication: Acquired epidermolysis bullosa
     Dosage: UNK
     Route: 061
  8. MICONAZOLE [Concomitant]
     Active Substance: MICONAZOLE
     Indication: Product used for unknown indication
     Dosage: 0.25 PERCENT, % IN ZINC PASTE
     Route: 065

REACTIONS (1)
  - Acne [Unknown]
